FAERS Safety Report 16165293 (Version 1)
Quarter: 2019Q2

REPORT INFORMATION
  Report Type: Spontaneous
  Country: US (occurrence: US)
  Receive Date: 20190405
  Receipt Date: 20190405
  Transmission Date: 20190711
  Serious: Yes (Other)
  Sender: FDA-Public Use
  Company Number: US-MYLANLABS-2019M1031112

PATIENT
  Age: 8 Year
  Sex: Male

DRUGS (2)
  1. MERCAPTOPURINE. [Suspect]
     Active Substance: MERCAPTOPURINE
     Dosage: RESUMED AT 100% ESCALATION AFTER MULTIPLE HOLDS AND REDUCTION FOR NEUTROPENIA.
     Route: 065
  2. MERCAPTOPURINE. [Suspect]
     Active Substance: MERCAPTOPURINE
     Indication: T-CELL TYPE ACUTE LEUKAEMIA
     Dosage: INITIAL DOSE; HAD MULTIPLE INTERRUPTIONS AND DOSE REDUCTIONS FOR NEUTROPENIA IN EARLIER MAINTENAN...
     Route: 065

REACTIONS (2)
  - Hypoglycaemia [Recovered/Resolved]
  - Neutropenia [Recovered/Resolved]
